FAERS Safety Report 9484566 (Version 1)
Quarter: 2013Q3

REPORT INFORMATION
  Report Type: Spontaneous
  Country: US (occurrence: US)
  Receive Date: 20130828
  Receipt Date: 20130828
  Transmission Date: 20140515
  Serious: Yes (Other)
  Sender: FDA-Public Use
  Company Number: US-AMGEN-KDL427526

PATIENT
  Age: 38 Year
  Sex: Female

DRUGS (2)
  1. ENBREL [Suspect]
     Indication: ANKYLOSING SPONDYLITIS
     Dosage: 25 MG, 2 TIMES/WK
     Route: 058
     Dates: start: 20080101
  2. ADALIMUMAB [Concomitant]

REACTIONS (10)
  - Crohn^s disease [Unknown]
  - Memory impairment [Unknown]
  - Surgery [Unknown]
  - Malaise [Recovered/Resolved]
  - Eating disorder [Recovered/Resolved]
  - Upper respiratory tract infection [Unknown]
  - Influenza like illness [Recovered/Resolved]
  - Bronchitis [Recovered/Resolved]
  - Vomiting [Recovered/Resolved]
  - Headache [Unknown]
